FAERS Safety Report 9146819 (Version 1)
Quarter: 2013Q1

REPORT INFORMATION
  Report Type: Spontaneous
  Country: JP (occurrence: None)
  Receive Date: 20130219
  Receipt Date: 20130219
  Transmission Date: 20140127
  Serious: Yes (Death)
  Sender: FDA-Public Use
  Company Number: SYM-2013-00442

PATIENT
  Age: 61 Year
  Sex: Female
  Weight: 67 kg

DRUGS (9)
  1. TIMOLOL MALEATE [Suspect]
     Indication: GLAUCOMA
     Dosage: ONE DROP IN EACH EYE AT EACH TIME.,  OPHTHALMIC?03/05/2010  -  03/05/2010
     Route: 047
     Dates: start: 20100305, end: 20100305
  2. MYDRIN M (TROPICAMIDE) (UNKNOWN) (TROPICAMIDE) [Concomitant]
  3. SANPILO (PILOCARPINE HYDROCHLORIDE) (UNKNOWN) (PILOCARPINE HYDROCHLORIDE) [Concomitant]
  4. MERCAZOLE (THIAMAZOLE) (UNKNOWN) (THIAMAZOLE) [Concomitant]
  5. MEPTIN (PROCATEROL HYDROCHLORIDE) (UNKNOWN) (PROCATEROL HYDROCHLORIDE) [Concomitant]
  6. THEO-DUR (THEOPHYLLINE) (UNKNOWN) (THEOPHYLLINE) [Concomitant]
  7. HOKUNALIN (TULOBUTEROL HYDROCHLORIDE) (UNKNOWN) (TULOBUTEROL HYDROCHLORIDE) [Concomitant]
  8. MUCOSOLVAN (AMBROXOL HYDROCHLORIDE) (CAPSULE) (AMBROXOL HYDROCHLORIDE) [Concomitant]
  9. VOLTAREN (DICLOFENAC SODIUM) (TABLETS) (DICLOFENAC SODIUM) [Concomitant]

REACTIONS (16)
  - Dyspnoea [None]
  - Respiratory arrest [None]
  - Pulse pressure decreased [None]
  - Cardio-respiratory arrest [None]
  - Loss of consciousness [None]
  - Asthma [None]
  - Procedural complication [None]
  - Rib fracture [None]
  - Sternal fracture [None]
  - Emphysema [None]
  - Traumatic lung injury [None]
  - Bronchial secretion retention [None]
  - Sudden death [None]
  - Conjunctival hyperaemia [None]
  - Petechiae [None]
  - Flushing [None]
